FAERS Safety Report 19714626 (Version 1)
Quarter: 2021Q3

REPORT INFORMATION
  Report Type: Spontaneous
  Country: US (occurrence: US)
  Receive Date: 20210817
  Receipt Date: 20210817
  Transmission Date: 20211014
  Serious: Yes (Hospitalization)
  Sender: FDA-Public Use
  Company Number: None

PATIENT
  Sex: Female

DRUGS (24)
  1. CALCITRIOL. [Concomitant]
     Active Substance: CALCITRIOL
  2. LORATADINE. [Concomitant]
     Active Substance: LORATADINE
  3. SODIUM BICAR [Concomitant]
  4. CEPHALEXIN. [Concomitant]
     Active Substance: CEPHALEXIN
  5. DAILYVITE [Concomitant]
  6. DOXYCYCL HYC [Concomitant]
     Active Substance: DOXYCYCLINE HYCLATE
  7. CLINDAMYCIN. [Concomitant]
     Active Substance: CLINDAMYCIN
  8. MELOXICAM. [Concomitant]
     Active Substance: MELOXICAM
  9. MIRTAZAPINE. [Concomitant]
     Active Substance: MIRTAZAPINE
  10. TACROLIMUS 1MG  CAP [Suspect]
     Active Substance: TACROLIMUS
     Indication: LIVER TRANSPLANT
     Route: 048
     Dates: start: 20180713
  11. LINZESS [Concomitant]
     Active Substance: LINACLOTIDE
  12. MULTIVITAMIN [Concomitant]
     Active Substance: VITAMINS
  13. OMEPRAZOLE. [Concomitant]
     Active Substance: OMEPRAZOLE
  14. ALPRAZOLAM. [Concomitant]
     Active Substance: ALPRAZOLAM
  15. FLUOCINONIDE. [Concomitant]
     Active Substance: FLUOCINONIDE
  16. HYDROMORPHON [Concomitant]
     Active Substance: HYDROMORPHONE
  17. MAG OXIDE [Concomitant]
     Active Substance: MAGNESIUM OXIDE
  18. FAMOTIDINE. [Concomitant]
     Active Substance: FAMOTIDINE
  19. LOSARTAN POT [Concomitant]
     Active Substance: LOSARTAN POTASSIUM
  20. TOBRAMYCIN OP [Concomitant]
  21. MYCOPHENOLATE 250MG CAP + 500MG TAB [Suspect]
     Active Substance: MYCOPHENOLIC ACID
     Route: 048
  22. HYDROCO/APAP [Concomitant]
     Active Substance: ACETAMINOPHEN\HYDROCODONE
  23. MAGNESIUM?OX [Concomitant]
  24. ONDANSETRON [Concomitant]
     Active Substance: ONDANSETRON

REACTIONS (2)
  - Therapy cessation [None]
  - Medical procedure [None]
